FAERS Safety Report 6124873-X (Version None)
Quarter: 2009Q1

REPORT INFORMATION
  Report Type: 
  Country: None (occurrence: None)
  Receive Date: 20090319
  Receipt Date: 20090305
  Transmission Date: 20090719
  Serious: Yes (Other)
  Sender: FDA-Public Use
  Company Number: IN-PFIZER INC-2009181243

PATIENT

DRUGS (5)
  1. SERTRALINE HCL [Suspect]
     Indication: DEPRESSION
     Dosage: 100 MG
     Dates: start: 20050801
  2. SERTRALINE HCL [Interacting]
     Indication: SUICIDAL IDEATION
  3. SELEGILINE [Interacting]
     Indication: PARKINSON'S DISEASE
     Dosage: 5 MG
     Dates: start: 20060901
  4. ROPINIROLE [Concomitant]
     Indication: PARKINSON'S DISEASE
     Dosage: 0.375 MG (NR,THRICE DAILY)
     Dates: start: 20060101
  5. TRIHEXYPHENIDYL [Concomitant]
     Indication: PARKINSON'S DISEASE
     Dosage: 3 MG (NR,THRICE DAILY)
     Dates: start: 20060101

REACTIONS (2)
  - DRUG INTERACTION [None]
  - MANIA [None]
